FAERS Safety Report 9373007 (Version 1)
Quarter: 2013Q2

REPORT INFORMATION
  Report Type: Spontaneous
  Country: TR (occurrence: None)
  Receive Date: 20130624
  Receipt Date: 20130624
  Transmission Date: 20140414
  Serious: Yes (Other)
  Sender: FDA-Public Use
  Company Number: 2013000135

PATIENT
  Age: 42 Year
  Sex: Male

DRUGS (3)
  1. ACEON (PERINDOPRIL ERBUMINE) TABLET [Suspect]
     Indication: PRODUCT USED FOR UNKNOWN INDICATION
  2. BEE VENOM [Suspect]
     Indication: IMMUNE TOLERANCE INDUCTION
     Dosage: PARENTERAL
     Route: 051
  3. CARVEDILOL (CARVEDILOL) [Concomitant]

REACTIONS (4)
  - Drug interaction [None]
  - Anaphylactic reaction [None]
  - Pruritus generalised [None]
  - Loss of consciousness [None]
